FAERS Safety Report 17914623 (Version 1)
Quarter: 2020Q2

REPORT INFORMATION
  Report Type: Other
  Country: FR (occurrence: FR)
  Receive Date: 20200619
  Receipt Date: 20200619
  Transmission Date: 20200714
  Serious: Yes (Life-Threatening)
  Sender: FDA-Public Use
  Company Number: FR-CADILA HEALTHCARE LIMITED-FR-ZYDUS-049648

PATIENT

DRUGS (7)
  1. LAMICTAL [Suspect]
     Active Substance: LAMOTRIGINE
     Indication: WRONG PATIENT RECEIVED PRODUCT
     Dosage: 2 DOSAGE FORM, SINGLE
     Route: 048
     Dates: start: 20200124, end: 20200124
  2. DIPIPERON [Suspect]
     Active Substance: PIPAMPERONE
     Indication: WRONG PATIENT RECEIVED PRODUCT
     Dosage: 0.5 DOSAGE FORM, SINGLE
     Route: 048
     Dates: start: 20200124, end: 20200124
  3. IRBESARTAN. [Suspect]
     Active Substance: IRBESARTAN
     Indication: WRONG PATIENT RECEIVED PRODUCT
     Dosage: 150 MILLIGRAM IN TOTAL
     Route: 048
     Dates: start: 20200124, end: 20200124
  4. MESTINON [Suspect]
     Active Substance: PYRIDOSTIGMINE BROMIDE
     Indication: WRONG PATIENT RECEIVED PRODUCT
     Dosage: 1 DOSAGE FORM, QD
     Route: 048
     Dates: start: 20200124, end: 20200124
  5. DEPAMIDE [Suspect]
     Active Substance: VALPROMIDE
     Indication: WRONG PATIENT RECEIVED PRODUCT
     Dosage: 2 DOSAGE FORM, SINGLE
     Route: 048
     Dates: start: 20200124, end: 20200124
  6. SERESTA [Suspect]
     Active Substance: OXAZEPAM
     Indication: WRONG PATIENT RECEIVED PRODUCT
     Dosage: 1 DOSAGE FORM, SINGLE
     Route: 048
     Dates: start: 20200124, end: 20200124
  7. PARKINANE LP [Suspect]
     Active Substance: TRIHEXYPHENIDYL HYDROCHLORIDE
     Indication: WRONG PATIENT RECEIVED PRODUCT
     Dosage: 1 DOSAGE FORM, SINGLE
     Route: 048
     Dates: start: 20200124, end: 20200124

REACTIONS (2)
  - Coma [Recovered/Resolved]
  - Wrong patient received product [Recovered/Resolved]

NARRATIVE: CASE EVENT DATE: 20200124
